FAERS Safety Report 13933123 (Version 2)
Quarter: 2017Q4

REPORT INFORMATION
  Report Type: Spontaneous
  Country: SE (occurrence: SE)
  Receive Date: 20170904
  Receipt Date: 20171016
  Transmission Date: 20180320
  Serious: Yes (Other)
  Sender: FDA-Public Use
  Company Number: SE-PFIZER INC-2017377182

PATIENT
  Age: 79 Year
  Sex: Female

DRUGS (1)
  1. XANOR [Suspect]
     Active Substance: ALPRAZOLAM
     Dosage: UNK
     Dates: end: 2015

REACTIONS (5)
  - Blood urine present [Recovered/Resolved]
  - Diverticulum [Unknown]
  - Adrenal insufficiency [Unknown]
  - Dysbacteriosis [Unknown]
  - Abdominal pain upper [Unknown]
